FAERS Safety Report 22175267 (Version 5)
Quarter: 2023Q2

REPORT INFORMATION
  Report Type: Report from Study
  Country: SI (occurrence: SI)
  Receive Date: 20230405
  Receipt Date: 20230524
  Transmission Date: 20230722
  Serious: Yes (Other)
  Sender: FDA-Public Use
  Company Number: SI-TAKEDA-2023TUS024736

PATIENT
  Age: 59 Year
  Sex: Female
  Weight: 69 kg

DRUGS (21)
  1. MOBOCERTINIB [Suspect]
     Active Substance: MOBOCERTINIB
     Indication: EGFR gene mutation
     Dosage: 160 MILLIGRAM, QD
     Route: 048
     Dates: start: 20230215, end: 20230315
  2. MOBOCERTINIB [Suspect]
     Active Substance: MOBOCERTINIB
     Indication: Non-small cell lung cancer
     Dosage: 160 MILLIGRAM, QD
     Route: 048
     Dates: start: 20230215, end: 20230315
  3. MOBOCERTINIB [Suspect]
     Active Substance: MOBOCERTINIB
     Indication: Adenocarcinoma
     Dosage: 160 MILLIGRAM, QD
     Route: 048
     Dates: start: 20230317, end: 20230322
  4. MOBOCERTINIB [Suspect]
     Active Substance: MOBOCERTINIB
     Dosage: 120 MILLIGRAM
     Route: 048
     Dates: start: 20230324, end: 20230405
  5. MOBOCERTINIB [Suspect]
     Active Substance: MOBOCERTINIB
     Dosage: UNK
     Route: 065
     Dates: start: 20230407, end: 20230412
  6. KALCIJEV KARBONAT [Concomitant]
     Indication: Metastases to bone
     Dosage: 2 GRAM, QD
     Route: 048
  7. VITAMIN D3 [Concomitant]
     Active Substance: CHOLECALCIFEROL
     Indication: Metastases to bone
     Dosage: UNK, 1/WEEK
     Route: 048
  8. ACETAMINOPHEN [Concomitant]
     Active Substance: ACETAMINOPHEN
     Indication: Pain
     Dosage: 1000 MILLIGRAM
     Route: 048
  9. DICLOFENAC [Concomitant]
     Active Substance: DICLOFENAC
     Indication: Pain
     Dosage: 75 MILLIGRAM
     Route: 048
  10. PANTOPRAZOLE SODIUM [Concomitant]
     Active Substance: PANTOPRAZOLE SODIUM
     Indication: Prophylaxis
     Dosage: 20 MILLIGRAM, QD
     Route: 048
  11. BISOPROLOL [Concomitant]
     Active Substance: BISOPROLOL
     Indication: Arrhythmia
     Dosage: 2.5 MILLIGRAM
     Route: 048
  12. FRAGMIN [Concomitant]
     Active Substance: DALTEPARIN SODIUM
     Indication: Pulmonary embolism
     Dosage: UNK, QD
     Route: 058
  13. XGEVA [Concomitant]
     Active Substance: DENOSUMAB
     Indication: Metastases to bone
     Dosage: 120 MILLIGRAM, MONTHLY
     Route: 058
  14. LYRICA [Concomitant]
     Active Substance: PREGABALIN
     Indication: Neuralgia
     Dosage: 25 MILLIGRAM, BID
     Route: 048
     Dates: end: 20230315
  15. CALCIUM CARBONATE [Concomitant]
     Active Substance: CALCIUM CARBONATE
     Indication: Metastases to bone
     Dosage: 2 GRAM, QD
     Route: 048
  16. PANTOPRAZOLE SODIUM [Concomitant]
     Active Substance: PANTOPRAZOLE SODIUM
     Indication: Gastrointestinal disorder prophylaxis
     Dosage: 20 MILLIGRAM, QD
     Route: 048
  17. BISOPROLOL [Concomitant]
     Active Substance: BISOPROLOL
     Indication: Arrhythmia
     Dosage: 2.5 MILLIGRAM
     Route: 048
  18. DALTEPARIN [Concomitant]
     Active Substance: DALTEPARIN
     Indication: Pulmonary embolism
     Dosage: UNK UNK, QD
     Route: 058
     Dates: end: 20230406
  19. DALTEPARIN [Concomitant]
     Active Substance: DALTEPARIN
     Dosage: UNK UNK, QD
     Route: 058
     Dates: start: 20230407
  20. DENOSUMAB [Concomitant]
     Active Substance: DENOSUMAB
     Indication: Metastases to bone
     Dosage: 120 MILLIGRAM, MONTHLY
     Route: 058
  21. LOPERAMIDE [Concomitant]
     Active Substance: LOPERAMIDE
     Indication: Diarrhoea
     Dosage: 2 MILLIGRAM
     Route: 065
     Dates: start: 20230215, end: 20230412

REACTIONS (8)
  - Non-small cell lung cancer [Unknown]
  - Transaminases increased [Recovered/Resolved]
  - Electrocardiogram QT prolonged [Unknown]
  - Diarrhoea [Unknown]
  - Vomiting [Unknown]
  - Nausea [Unknown]
  - Rash [Recovered/Resolved]
  - Stomatitis [Recovered/Resolved]

NARRATIVE: CASE EVENT DATE: 20230217
